FAERS Safety Report 6680962-2 (Version None)
Quarter: 2010Q2

REPORT INFORMATION
  Report Type: 
  Country: None (occurrence: None)
  Receive Date: 20100414
  Receipt Date: 20100407
  Transmission Date: 20101027
  Serious: Yes (Other)
  Sender: FDA-Public Use
  Company Number: US-JNJFOC-20100402090

PATIENT
  Sex: Female
  Weight: 122.47 kg

DRUGS (8)
  1. REMICADE [Suspect]
     Indication: ARTHRITIS
     Route: 042
  2. REMICADE [Suspect]
     Route: 042
  3. REMICADE [Suspect]
     Indication: PSORIASIS
     Route: 042
  4. REMICADE [Suspect]
     Route: 042
  5. PROZAC [Concomitant]
     Indication: OBSESSIVE-COMPULSIVE DISORDER
  6. BUSPAR [Concomitant]
     Indication: OBSESSIVE-COMPULSIVE DISORDER
  7. AMARYL [Concomitant]
     Indication: DIABETES MELLITUS
  8. ACTOS [Concomitant]
     Indication: DIABETES MELLITUS

REACTIONS (6)
  - AMNESIA [None]
  - ARTHRALGIA [None]
  - ARTHRITIS [None]
  - EPISTAXIS [None]
  - NODULE [None]
  - PSORIASIS [None]
